FAERS Safety Report 10309261 (Version 4)
Quarter: 2015Q1

REPORT INFORMATION
  Report Type: Spontaneous
  Country: US (occurrence: None)
  Receive Date: 20140714
  Receipt Date: 20150226
  Transmission Date: 20150720
  Serious: Yes (Death, Hospitalization)
  Sender: FDA-Public Use
  Company Number: UNT-2014-003466

PATIENT
  Age: 60 Year
  Sex: Female
  Weight: 117.9 kg

DRUGS (2)
  1. TRACLEER [Concomitant]
     Active Substance: BOSENTAN\BOSENTAN MONOHYDRATE
  2. REMODULIN [Suspect]
     Active Substance: TREPROSTINIL
     Indication: PULMONARY ARTERIAL HYPERTENSION
     Dosage: CONTINUING
     Route: 041
     Dates: start: 20140411

REACTIONS (4)
  - Pulmonary arterial hypertension [None]
  - Dyspnoea [None]
  - Oxygen consumption increased [None]
  - Disease progression [None]

NARRATIVE: CASE EVENT DATE: 2014
